FAERS Safety Report 6509275-6 (Version None)
Quarter: 2009Q4

REPORT INFORMATION
  Report Type: 
  Country: None (occurrence: None)
  Receive Date: 20091222
  Receipt Date: 20091214
  Transmission Date: 20100525
  Serious: Yes (Other)
  Sender: FDA-Public Use
  Company Number: US-BIOGENIDEC-2009BI006887

PATIENT
  Age: 70 Year
  Sex: Male

DRUGS (2)
  1. AVONEX [Suspect]
     Indication: MULTIPLE SCLEROSIS
     Route: 030
     Dates: start: 20040101, end: 20090401
  2. AVONEX [Suspect]
     Route: 030
     Dates: start: 19980101, end: 20040101

REACTIONS (2)
  - B-CELL LYMPHOMA STAGE I [None]
  - NEOPLASM MALIGNANT [None]
